FAERS Safety Report 25714641 (Version 2)
Quarter: 2025Q4

REPORT INFORMATION
  Report Type: Spontaneous
  Country: LK (occurrence: LK)
  Receive Date: 20250822
  Receipt Date: 20251029
  Transmission Date: 20260118
  Serious: Yes (Life-Threatening, Hospitalization, Other)
  Sender: GALPHARM INTERNATIONAL
  Company Number: LK-MLMSERVICE-20250804-PI602309-00029-1

PATIENT
  Age: 45 Year
  Sex: Female

DRUGS (1)
  1. ACETAMINOPHEN [Suspect]
     Active Substance: ACETAMINOPHEN
     Indication: Pelvic pain
     Dosage: DAILY INTAKE OF 2-3 G OF PARACETAMOL OVER 6 MONTHS
     Route: 048

REACTIONS (4)
  - Metabolic acidosis [Recovered/Resolved]
  - Intentional product misuse [Recovering/Resolving]
  - Respiratory fatigue [Recovered/Resolved]
  - Incorrect product administration duration [Recovered/Resolved]
